FAERS Safety Report 4596882-3 (Version None)
Quarter: 2005Q1

REPORT INFORMATION
  Report Type: 
  Country: None (occurrence: None)
  Receive Date: 20050228
  Receipt Date: 20050217
  Transmission Date: 20050727
  Serious: Yes (Hospitalization, Other)
  Sender: FDA-Public Use
  Company Number: 2004UW22388

PATIENT
  Age: 55 Year
  Sex: Female

DRUGS (4)
  1. SEROQUEL [Suspect]
     Dosage: 200 MG PO
     Route: 048
  2. SERZONE [Suspect]
     Dosage: 200 MG
  3. WELLBUTRIN [Concomitant]
  4. ASACOL [Concomitant]

REACTIONS (8)
  - AKATHISIA [None]
  - DYSKINESIA [None]
  - FEELING HOT AND COLD [None]
  - MEDICATION ERROR [None]
  - MOVEMENT DISORDER [None]
  - PARKINSONISM [None]
  - RESTLESSNESS [None]
  - TIC [None]
